FAERS Safety Report 8869543 (Version 1)
Quarter: 2012Q4

REPORT INFORMATION
  Report Type: 
  Country: US (occurrence: US)
  Receive Date: 20121026
  Receipt Date: 20121026
  Transmission Date: 20130627
  Serious: No
  Sender: FDA-Public Use
  Company Number: US-AMGEN-USASP2012042880

PATIENT
  Age: 58 Year
  Sex: Female
  Weight: 68 kg

DRUGS (4)
  1. ENBREL [Suspect]
     Indication: RHEUMATOID ARTHRITIS
     Dosage: 25 mg, 2 times/wk
     Route: 058
  2. SINGULAR [Concomitant]
     Dosage: 10 mg, UNK
     Route: 048
  3. VITAMIN D /00107901/ [Concomitant]
     Dosage: 50000 unit, UNK
     Route: 048
  4. FISH OIL [Concomitant]
     Dosage: UNK
     Route: 048

REACTIONS (1)
  - Infectious mononucleosis [Recovered/Resolved]
